FAERS Safety Report 5051859-9 (Version None)
Quarter: 2006Q3

REPORT INFORMATION
  Report Type: 
  Country: None (occurrence: None)
  Receive Date: 20060711
  Receipt Date: 20060705
  Transmission Date: 20061208
  Serious: Yes (Other)
  Sender: FDA-Public Use
  Company Number: 2006BI008303

PATIENT
  Age: 46 Year
  Sex: Female

DRUGS (12)
  1. AVONEX [Suspect]
     Indication: MULTIPLE SCLEROSIS
     Dosage: 30 UG;QW;IM
     Route: 030
     Dates: start: 19960806, end: 20050101
  2. AVONEX [Suspect]
     Indication: MULTIPLE SCLEROSIS
     Dosage: 30 UG;QW;IM
     Route: 030
     Dates: start: 20050101
  3. TEGRETOL [Concomitant]
  4. NEURONTIN [Concomitant]
  5. SYNTHROID [Concomitant]
  6. PREVACID [Concomitant]
  7. ESTRATEST [Concomitant]
  8. VITAMIN E [Concomitant]
  9. MULTI-VITAMIN [Concomitant]
  10. TOPROL-XL [Concomitant]
  11. ANTIVERT [Concomitant]
  12. DOMPERIDONE [Concomitant]

REACTIONS (7)
  - DIZZINESS [None]
  - NAUSEA [None]
  - PAIN [None]
  - PAIN IN EXTREMITY [None]
  - POST PROCEDURAL COMPLICATION [None]
  - PYREXIA [None]
  - VOMITING [None]
